FAERS Safety Report 20541496 (Version 1)
Quarter: 2022Q1

REPORT INFORMATION
  Report Type: Spontaneous
  Country: US (occurrence: None)
  Receive Date: 20220302
  Receipt Date: 20220302
  Transmission Date: 20220423
  Serious: Yes (Life-Threatening, Hospitalization)
  Sender: FDA-Public Use
  Company Number: None

PATIENT
  Age: 51 Year
  Sex: Female
  Weight: 65.25 kg

DRUGS (2)
  1. KENALOG-40 [Suspect]
     Active Substance: TRIAMCINOLONE ACETONIDE
     Indication: Periarthritis
     Dosage: OTHER QUANTITY : 6 ML;?OTHER ROUTE : INJECTION INTO JOINT;?
     Route: 050
     Dates: start: 20220207
  2. SYNTHROID [Concomitant]
     Active Substance: LEVOTHYROXINE SODIUM

REACTIONS (7)
  - Panic attack [None]
  - Chest pain [None]
  - Abdominal pain upper [None]
  - Headache [None]
  - Dyspnoea [None]
  - Neck pain [None]
  - Hypertension [None]

NARRATIVE: CASE EVENT DATE: 20220213
